FAERS Safety Report 15264711 (Version 3)
Quarter: 2018Q4

REPORT INFORMATION
  Report Type: Spontaneous
  Country: CH (occurrence: CH)
  Receive Date: 20180810
  Receipt Date: 20181001
  Transmission Date: 20190204
  Serious: Yes (Other)
  Sender: FDA-Public Use
  Company Number: CH-SA-2018SA212289

PATIENT
  Age: 74 Year
  Sex: Female
  Weight: 61 kg

DRUGS (7)
  1. OXALIPLATIN. [Suspect]
     Active Substance: OXALIPLATIN
     Indication: METASTATIC NEOPLASM
     Dosage: 100 MG, QCY
     Route: 042
     Dates: start: 20180606, end: 20180606
  2. OXALIPLATIN. [Suspect]
     Active Substance: OXALIPLATIN
     Dosage: 100 MG, QCY
     Route: 042
     Dates: start: 20180718, end: 20180718
  3. IRINOTECAN [Concomitant]
     Active Substance: IRINOTECAN
     Route: 065
  4. FLOUROURACIL [Concomitant]
     Active Substance: FLUOROURACIL
     Route: 065
  5. TAXOTERE [Concomitant]
     Active Substance: DOCETAXEL
     Route: 065
  6. OXALIPLATIN. [Suspect]
     Active Substance: OXALIPLATIN
     Dosage: 160 MG, UNK
     Route: 042
     Dates: start: 20180702, end: 20180702
  7. CALCIUM FOLINATE [Concomitant]
     Active Substance: LEUCOVORIN CALCIUM
     Route: 065

REACTIONS (7)
  - Anxiety [Recovered/Resolved]
  - Dysarthria [Recovered/Resolved]
  - Dysarthria [Recovered/Resolved]
  - Discomfort [Recovered/Resolved]
  - Dyspnoea [Recovered/Resolved]
  - Dyspnoea [Recovered/Resolved]
  - Discomfort [Recovered/Resolved]

NARRATIVE: CASE EVENT DATE: 20180606
